FAERS Safety Report 15669430 (Version 1)
Quarter: 2018Q4

REPORT INFORMATION
  Report Type: Report from Study
  Country: GB (occurrence: GB)
  Receive Date: 20181129
  Receipt Date: 20181129
  Transmission Date: 20190205
  Serious: Yes (Other)
  Sender: FDA-Public Use
  Company Number: GB-TEVA-2018-GB-982274

PATIENT
  Sex: Female

DRUGS (1)
  1. COPAXONE [Suspect]
     Active Substance: GLATIRAMER ACETATE
     Indication: PRODUCT USED FOR UNKNOWN INDICATION
     Dosage: 40 MG/ML, SUBCUTANEOUS INJECTION, THREE TIMES WEEKLY
     Route: 058
     Dates: start: 20170705

REACTIONS (4)
  - Back pain [Unknown]
  - Therapy change [Unknown]
  - Motor dysfunction [Unknown]
  - Urge incontinence [Unknown]
